FAERS Safety Report 6916500-6 (Version None)
Quarter: 2010Q3

REPORT INFORMATION
  Report Type: 
  Country: None (occurrence: None)
  Receive Date: 20100810
  Receipt Date: 20100727
  Transmission Date: 20110219
  Serious: Yes (Hospitalization, Other)
  Sender: FDA-Public Use
  Company Number: PHHY2010US28581

PATIENT
  Sex: Female

DRUGS (2)
  1. METOPIRONE [Suspect]
     Indication: CUSHING'S SYNDROME
  2. NEXIUM [Suspect]

REACTIONS (5)
  - BLOOD GLUCOSE INCREASED [None]
  - DEEP VEIN THROMBOSIS [None]
  - INTERNATIONAL NORMALISED RATIO INCREASED [None]
  - PROTHROMBIN TIME PROLONGED [None]
  - RENAL FAILURE [None]
